FAERS Safety Report 13962512 (Version 1)
Quarter: 2017Q3

REPORT INFORMATION
  Report Type: Report from Study
  Country: None (occurrence: BR)
  Receive Date: 20170913
  Receipt Date: 20170913
  Transmission Date: 20171128
  Serious: Yes (Hospitalization, Other)
  Sender: FDA-Public Use
  Company Number: BR-ABBVIE-17K-020-2096407-00

PATIENT
  Age: 48 Year
  Sex: Female
  Weight: 80 kg

DRUGS (3)
  1. MORPHIN [Suspect]
     Active Substance: MORPHINE
     Indication: PAIN
     Route: 065
     Dates: start: 201706, end: 2017
  2. TRAMAL [Suspect]
     Active Substance: TRAMADOL
     Indication: PAIN
     Route: 065
     Dates: start: 201706
  3. HUMIRA [Suspect]
     Active Substance: ADALIMUMAB
     Indication: ANKYLOSING SPONDYLITIS
     Route: 058
     Dates: start: 20160525

REACTIONS (11)
  - Swelling [Recovered/Resolved]
  - Dyspnoea [Recovered/Resolved]
  - Ankylosing spondylitis [Recovered/Resolved]
  - Ankylosing spondylitis [Not Recovered/Not Resolved]
  - Urinary retention [Recovered/Resolved]
  - Tremor [Recovered/Resolved]
  - Pain [Unknown]
  - Daydreaming [Recovered/Resolved]
  - Pain [Recovered/Resolved]
  - Heart rate increased [Recovered/Resolved]
  - Sciatica [Not Recovered/Not Resolved]

NARRATIVE: CASE EVENT DATE: 201706
